FAERS Safety Report 4342461-2 (Version None)
Quarter: 2004Q2

REPORT INFORMATION
  Report Type: 
  Country: None (occurrence: None)
  Receive Date: 20040416
  Receipt Date: 20040323
  Transmission Date: 20050107
  Serious: Yes (Death, Hospitalization)
  Sender: FDA-Public Use
  Company Number: 2004IM000477

PATIENT
  Age: 62 Year
  Sex: Male

DRUGS (6)
  1. ACTIMMUNE [Suspect]
     Indication: INTERSTITIAL LUNG DISEASE
     Dosage: 100 UG; TIW; SUBCUTANEOUS
     Route: 058
     Dates: start: 20040310
  2. PREDNISONE [Concomitant]
  3. ALBUTEROL [Concomitant]
  4. SYNTHROID [Concomitant]
  5. FLONASE [Concomitant]
  6. OXYGEN [Concomitant]

REACTIONS (2)
  - HYPOXIA [None]
  - INFLUENZA LIKE ILLNESS [None]
